FAERS Safety Report 13047396 (Version 1)
Quarter: 2016Q4

REPORT INFORMATION
  Report Type: Spontaneous
  Country: US (occurrence: US)
  Receive Date: 20161220
  Receipt Date: 20161220
  Transmission Date: 20170207
  Serious: Yes (Hospitalization)
  Sender: FDA-Public Use
  Company Number: US-LUNDBECK-DKLU2024004

PATIENT
  Age: 82 Year
  Sex: Male

DRUGS (4)
  1. NORTHERA [Suspect]
     Active Substance: DROXIDOPA
     Indication: SYNCOPE
     Route: 048
     Dates: start: 2015, end: 20161129
  2. ARICEPT [Concomitant]
     Active Substance: DONEPEZIL HYDROCHLORIDE
     Indication: PRODUCT USED FOR UNKNOWN INDICATION
     Route: 065
     Dates: start: 201610, end: 20161129
  3. NORTHERA [Suspect]
     Active Substance: DROXIDOPA
     Indication: ORTHOSTATIC HYPOTENSION
  4. ARICEPT [Concomitant]
     Active Substance: DONEPEZIL HYDROCHLORIDE
     Dosage: INCREASED DOSE
     Route: 065
     Dates: start: 20161129

REACTIONS (11)
  - Seizure [Unknown]
  - Electroencephalogram abnormal [Unknown]
  - Memory impairment [Unknown]
  - Skin abrasion [Unknown]
  - Decreased appetite [Unknown]
  - Decreased interest [Unknown]
  - Hospitalisation [Unknown]
  - Urinary incontinence [Unknown]
  - Hypersomnia [Unknown]
  - Fall [Recovered/Resolved with Sequelae]
  - Blood glucose increased [Unknown]

NARRATIVE: CASE EVENT DATE: 201610
